FAERS Safety Report 13011173 (Version 1)
Quarter: 2016Q4

REPORT INFORMATION
  Report Type: Spontaneous
  Country: US (occurrence: US)
  Receive Date: 20161208
  Receipt Date: 20161208
  Transmission Date: 20170207
  Serious: Yes (Hospitalization)
  Sender: FDA-Public Use
  Company Number: US-ASTRAZENECA-2016SF27852

PATIENT
  Age: 20980 Day
  Sex: Male
  Weight: 101.2 kg

DRUGS (17)
  1. CRESTOR [Suspect]
     Active Substance: ROSUVASTATIN CALCIUM
     Indication: BLOOD TRIGLYCERIDES INCREASED
     Route: 048
     Dates: start: 2005
  2. MULTIVITAMIN [Concomitant]
     Active Substance: VITAMINS
     Dosage: 1 THREE TIMES A DAY
     Route: 048
  3. MAGNESIUM [Concomitant]
     Active Substance: MAGNESIUM
     Indication: ANGIOPATHY
     Route: 048
     Dates: start: 1990
  4. LISINOPRIL. [Suspect]
     Active Substance: LISINOPRIL
     Indication: BLOOD PRESSURE MEASUREMENT
     Route: 048
     Dates: start: 20161123
  5. VIT E TOCOTRIENOL [Concomitant]
     Indication: BLOOD CHOLESTEROL DECREASED
     Route: 048
  6. MENAQUINONE [Concomitant]
     Indication: ANGIOPATHY
     Route: 048
  7. BRILINTA [Suspect]
     Active Substance: TICAGRELOR
     Indication: STENT PLACEMENT
     Route: 048
     Dates: start: 20161123
  8. ASPIRIN. [Concomitant]
     Active Substance: ASPIRIN
     Route: 048
  9. ARMOUR THYROID SUPPLEMENT [Concomitant]
     Indication: HYPOTHYROIDISM
     Route: 048
     Dates: start: 1994
  10. AMLODIPINE BESYLATE. [Concomitant]
     Active Substance: AMLODIPINE BESYLATE
     Indication: ANGIOPATHY
     Route: 048
     Dates: start: 20161123
  11. VITAMIN E TOCOPHERALS [Concomitant]
     Indication: BLOOD CHOLESTEROL DECREASED
     Route: 048
  12. D-RIBOSE [Concomitant]
     Active Substance: DIETARY SUPPLEMENT
     Indication: CARDIAC DISORDER
     Route: 048
     Dates: start: 1990
  13. ARMOUR THYROID SUPPLEMENT [Concomitant]
     Indication: HYPOTHYROIDISM
     Route: 048
     Dates: start: 1994
  14. AMLODIPINE BESYLATE. [Concomitant]
     Active Substance: AMLODIPINE BESYLATE
     Indication: ILL-DEFINED DISORDER
     Route: 048
     Dates: start: 20161123
  15. MENAQUINONE [Concomitant]
     Indication: CALCIUM METABOLISM DISORDER
     Route: 048
  16. COQ10 UBIQUINOL [Concomitant]
     Indication: CARDIAC DISORDER
     Dosage: 2 DAILY
     Route: 048
     Dates: start: 1990
  17. VITAMIN D3 [Concomitant]
     Active Substance: CHOLECALCIFEROL
     Indication: IMMUNE SYSTEM DISORDER
     Dosage: DAILY
     Route: 048
     Dates: start: 1990

REACTIONS (4)
  - Vascular occlusion [Unknown]
  - Drug dose omission [Unknown]
  - Musculoskeletal pain [Unknown]
  - Musculoskeletal stiffness [Unknown]

NARRATIVE: CASE EVENT DATE: 20161123
